FAERS Safety Report 6237751-2 (Version None)
Quarter: 2009Q2

REPORT INFORMATION
  Report Type: 
  Country: None (occurrence: None)
  Receive Date: 20090618
  Receipt Date: 20090615
  Transmission Date: 20091009
  Serious: Yes (Other)
  Sender: FDA-Public Use
  Company Number: DSA_33859_2009

PATIENT
  Sex: Female
  Weight: 48.9885 kg

DRUGS (7)
  1. CARDIZEM LA [Suspect]
     Indication: BLOOD CHOLESTEROL INCREASED
     Dosage: 180 MG QD, SAMPLE PACK FROM MD, 180 MG QD, BRAND NAME REFILL
     Dates: start: 20090501, end: 20090515
  2. CARDIZEM LA [Suspect]
     Indication: HYPERTENSION
     Dosage: 180 MG QD, SAMPLE PACK FROM MD, 180 MG QD, BRAND NAME REFILL
     Dates: start: 20090501, end: 20090515
  3. CARDIZEM LA [Suspect]
     Indication: BLOOD CHOLESTEROL INCREASED
     Dosage: 180 MG QD, SAMPLE PACK FROM MD, 180 MG QD, BRAND NAME REFILL
     Dates: start: 20090522
  4. CARDIZEM LA [Suspect]
     Indication: HYPERTENSION
     Dosage: 180 MG QD, SAMPLE PACK FROM MD, 180 MG QD, BRAND NAME REFILL
     Dates: start: 20090522
  5. DILTIAZEM HYDROCHLORIDE [Suspect]
     Indication: HYPERTENSION
     Dosage: 180 MG QD, GENERIC REFILL
     Dates: start: 20090515, end: 20090522
  6. COUMADIN /00627701/ [Concomitant]
  7. SYNTHROID [Concomitant]

REACTIONS (6)
  - ABDOMINAL DISCOMFORT [None]
  - BLOOD PRESSURE SYSTOLIC INCREASED [None]
  - DYSPNOEA [None]
  - FEELING ABNORMAL [None]
  - PRODUCT SUBSTITUTION ISSUE [None]
  - WEIGHT DECREASED [None]
